FAERS Safety Report 12786795 (Version 1)
Quarter: 2016Q3

REPORT INFORMATION
  Report Type: Spontaneous
  Country: CA (occurrence: US)
  Receive Date: 20160927
  Receipt Date: 20160927
  Transmission Date: 20161109
  Serious: Yes (Hospitalization)
  Sender: FDA-Public Use
  Company Number: None

PATIENT
  Age: 59 Year
  Sex: Male
  Weight: 138.6 kg

DRUGS (1)
  1. TEMOZOLOMIDE. [Suspect]
     Active Substance: TEMOZOLOMIDE
     Dosage: 160MG/DAY IN THE EVENINGS DURING THE WEEK. TOTAL DOSE ADMINISTERED 1760 MG
     Dates: end: 20160901

REACTIONS (6)
  - Aphasia [None]
  - Haemorrhage [None]
  - Loss of consciousness [None]
  - Generalised tonic-clonic seizure [None]
  - Computerised tomogram abnormal [None]
  - Confusional state [None]

NARRATIVE: CASE EVENT DATE: 20160902
